FAERS Safety Report 10505860 (Version 1)
Quarter: 2014Q4

REPORT INFORMATION
  Report Type: Spontaneous
  Country: US (occurrence: US)
  Receive Date: 20141008
  Receipt Date: 20141008
  Transmission Date: 20150528
  Serious: Yes (Other)
  Sender: FDA-Public Use
  Company Number: US-SA-2014SA104225

PATIENT
  Sex: Male

DRUGS (2)
  1. ARAVA [Suspect]
     Active Substance: LEFLUNOMIDE
     Route: 065
  2. AZULFIDINE [Suspect]
     Active Substance: SULFASALAZINE
     Route: 065

REACTIONS (3)
  - Full blood count decreased [Recovered/Resolved]
  - Drug hypersensitivity [Unknown]
  - Leukopenia [Unknown]
